FAERS Safety Report 19397921 (Version 1)
Quarter: 2021Q2

REPORT INFORMATION
  Report Type: Spontaneous
  Country: US (occurrence: US)
  Receive Date: 20210609
  Receipt Date: 20210609
  Transmission Date: 20210717
  Serious: Yes (Disabling)
  Sender: FDA-Public Use
  Company Number: None

PATIENT
  Age: 49 Year
  Sex: Female

DRUGS (15)
  1. TRAZODONE [Concomitant]
     Active Substance: TRAZODONE HYDROCHLORIDE
  2. UC?11 [Concomitant]
  3. XANAX [Concomitant]
     Active Substance: ALPRAZOLAM
  4. BETAINE HCL [Concomitant]
  5. ARMOUR THYROID [Concomitant]
     Active Substance: THYROID, PORCINE
  6. BACLOFEN. [Concomitant]
     Active Substance: BACLOFEN
  7. MULTI?VITAMIN [Concomitant]
     Active Substance: .ALPHA.-TOCOPHEROL ACETATE, DL-\ASCORBIC ACID\CYANOCOBALAMIN\FLUORIDE ION\FOLIC ACID\NIACIN\PYRIDOXINE\RIBOFLAVIN\THIAMINE\VITAMIN A\VITAMIN D
  8. VITAMIN D3 [Concomitant]
     Active Substance: CHOLECALCIFEROL
  9. FEXOFENADINE [Concomitant]
     Active Substance: FEXOFENADINE HYDROCHLORIDE
  10. FISH OIL [Concomitant]
     Active Substance: FISH OIL
  11. FEROSUL [Concomitant]
     Active Substance: FERROUS SULFATE
  12. LUTEIN [Concomitant]
     Active Substance: LUTEIN
  13. UBIQUINOL [Concomitant]
     Active Substance: UBIQUINOL
  14. PROBIOTIC [Concomitant]
     Active Substance: PROBIOTICS NOS
  15. SUNOSI [Suspect]
     Active Substance: SOLRIAMFETOL
     Indication: SOMNOLENCE
     Dosage: ?          QUANTITY:1 TABLET(S);?
     Route: 048

REACTIONS (7)
  - Palpitations [None]
  - Anger [None]
  - Drug intolerance [None]
  - Chest discomfort [None]
  - Agitation [None]
  - Raynaud^s phenomenon [None]
  - Heart rate increased [None]

NARRATIVE: CASE EVENT DATE: 20201216
